FAERS Safety Report 7386180-7 (Version None)
Quarter: 2011Q1

REPORT INFORMATION
  Report Type: 
  Country: None (occurrence: None)
  Receive Date: 20110323
  Receipt Date: 20110314
  Transmission Date: 20110831
  Serious: Yes (Other)
  Sender: FDA-Public Use
  Company Number: 2011SP009029

PATIENT
  Age: 62 Year
  Sex: Female

DRUGS (3)
  1. REBETOL [Suspect]
     Indication: HEPATITIS C
     Dates: start: 20050401, end: 20051001
  2. PEGINTERFERON ALFA-2B [Suspect]
     Indication: HEPATITIS C
     Dosage: 3MCG/KG;QW; 2 MCG/KG;QW
     Dates: start: 20050401, end: 20050601
  3. PEGINTERFERON ALFA-2B [Suspect]
     Indication: HEPATITIS C
     Dosage: 3MCG/KG;QW; 2 MCG/KG;QW
     Dates: start: 20050601, end: 20051001

REACTIONS (3)
  - MICROANGIOPATHY [None]
  - ANTISYNTHETASE SYNDROME [None]
  - DRUG INEFFECTIVE [None]
